APPROVED DRUG PRODUCT: ESCITALOPRAM OXALATE
Active Ingredient: ESCITALOPRAM OXALATE
Strength: EQ 5MG BASE/5ML
Dosage Form/Route: SOLUTION;ORAL
Application: A203967 | Product #001
Applicant: ANTRIM PHARMACEUTICALS LLC
Approved: May 26, 2015 | RLD: No | RS: No | Type: DISCN